FAERS Safety Report 6084058-2 (Version None)
Quarter: 2009Q1

REPORT INFORMATION
  Report Type: 
  Country: None (occurrence: None)
  Receive Date: 20090219
  Receipt Date: 20090218
  Transmission Date: 20090719
  Serious: Yes (Other)
  Sender: FDA-Public Use
  Company Number: DE-BRISTOL-MYERS SQUIBB COMPANY-14503056

PATIENT
  Age: 55 Year
  Sex: Female

DRUGS (3)
  1. ORENCIA [Suspect]
     Indication: POLYARTHRITIS
     Dosage: INFUSION (4 - 5),15SEP08 AND 27OCT08=750MG, 29SEP08=500MG
     Route: 042
     Dates: start: 20080915, end: 20081027
  2. METHOTREXATE [Concomitant]
     Indication: POLYARTHRITIS
  3. STEROIDS [Concomitant]
     Indication: POLYARTHRITIS

REACTIONS (1)
  - LIVER FUNCTION TEST ABNORMAL [None]
